FAERS Safety Report 14268588 (Version 1)
Quarter: 2017Q4

REPORT INFORMATION
  Report Type: Spontaneous
  Country: JP (occurrence: JP)
  Receive Date: 20171211
  Receipt Date: 20171211
  Transmission Date: 20180321
  Serious: Yes (Death, Other)
  Sender: FDA-Public Use
  Company Number: JP-JNJFOC-20171207906

PATIENT
  Age: 79 Year
  Sex: Male

DRUGS (5)
  1. DARZALEX [Suspect]
     Active Substance: DARATUMUMAB
     Indication: PLASMA CELL MYELOMA
     Route: 042
     Dates: start: 20171019, end: 20171019
  2. REVLIMID [Suspect]
     Active Substance: LENALIDOMIDE
     Indication: PLASMA CELL MYELOMA
     Route: 048
     Dates: start: 20171019, end: 20171026
  3. DARZALEX [Suspect]
     Active Substance: DARATUMUMAB
     Indication: PLASMA CELL MYELOMA
     Route: 042
     Dates: start: 20171026, end: 20171116
  4. REVLIMID [Suspect]
     Active Substance: LENALIDOMIDE
     Indication: PLASMA CELL MYELOMA
     Route: 048
  5. DEXAMETHASONE. [Suspect]
     Active Substance: DEXAMETHASONE
     Indication: PLASMA CELL MYELOMA
     Route: 042
     Dates: start: 20171019, end: 20171116

REACTIONS (10)
  - Epistaxis [Not Recovered/Not Resolved]
  - Hypercalcaemia [Unknown]
  - Oral mucosa erosion [Not Recovered/Not Resolved]
  - Disease progression [Fatal]
  - Altered state of consciousness [Unknown]
  - Blood lactate dehydrogenase decreased [Unknown]
  - Tumour lysis syndrome [Recovered/Resolved]
  - Dizziness [Recovered/Resolved]
  - Mouth haemorrhage [Not Recovered/Not Resolved]
  - Dizziness postural [Recovered/Resolved]

NARRATIVE: CASE EVENT DATE: 201710
